FAERS Safety Report 4423526-3 (Version None)
Quarter: 2004Q3

REPORT INFORMATION
  Report Type: 
  Country: None (occurrence: None)
  Receive Date: 20040713
  Receipt Date: 20040422
  Transmission Date: 20050211
  Serious: No
  Sender: FDA-Public Use
  Company Number: PHEH2004US04549

PATIENT
  Age: 36 Year
  Sex: Male

DRUGS (2)
  1. ELIDEL [Suspect]
     Indication: DRY SKIN
     Dosage: PRN, TOPICAL
     Route: 061
     Dates: start: 20031201
  2. ETHANOL (ETHANOL) [Suspect]
     Dosage: ORAL
     Route: 048

REACTIONS (5)
  - ALCOHOL INTERACTION [None]
  - EYE SWELLING [None]
  - FEELING HOT [None]
  - RASH MACULAR [None]
  - UNEXPECTED THERAPEUTIC DRUG EFFECT [None]
